FAERS Safety Report 6980267-6 (Version None)
Quarter: 2010Q3

REPORT INFORMATION
  Report Type: 
  Country: None (occurrence: None)
  Receive Date: 20100914
  Receipt Date: 20100907
  Transmission Date: 20110219
  Serious: Yes (Hospitalization, Other)
  Sender: FDA-Public Use
  Company Number: US-RB-015113-10

PATIENT
  Age: 24 Month
  Sex: Male

DRUGS (2)
  1. SUBOXONE [Suspect]
     Indication: DRUG DEPENDENCE
     Dosage: TOOK PIECES OF AN 8 MG TABLET
     Route: 048
     Dates: start: 20100701, end: 20100701
  2. ATIVAN [Suspect]
     Indication: PRODUCT USED FOR UNKNOWN INDICATION
     Dosage: UNKNOWN DOSING DETAILS
     Route: 065
     Dates: start: 20100701

REACTIONS (3)
  - ACCIDENTAL DRUG INTAKE BY CHILD [None]
  - CONVULSION [None]
  - RESPIRATORY DEPRESSION [None]
